FAERS Safety Report 19441623 (Version 1)
Quarter: 2021Q2

REPORT INFORMATION
  Report Type: Spontaneous
  Country: US (occurrence: US)
  Receive Date: 20210616
  Receipt Date: 20210616
  Transmission Date: 20210717
  Serious: Yes (Death, Hospitalization)
  Sender: FDA-Public Use
  Company Number: None

PATIENT
  Age: 85 Year
  Sex: Female
  Weight: 49.9 kg

DRUGS (1)
  1. AMIODARONE [Suspect]
     Active Substance: AMIODARONE

REACTIONS (10)
  - Lung consolidation [None]
  - Tachypnoea [None]
  - Pulmonary oedema [None]
  - Infection [None]
  - Restlessness [None]
  - Bronchiectasis [None]
  - Toxicity to various agents [None]
  - Organising pneumonia [None]
  - Pneumonitis [None]
  - Respiratory failure [None]

NARRATIVE: CASE EVENT DATE: 20210319
